FAERS Safety Report 26213036 (Version 1)
Quarter: 2025Q4

REPORT INFORMATION
  Report Type: Spontaneous
  Country: GB (occurrence: GB)
  Receive Date: 20251230
  Receipt Date: 20251230
  Transmission Date: 20260118
  Serious: Yes (Hospitalization)
  Sender: RANBAXY
  Company Number: GB-MYLANLABS-2025M1110045

PATIENT
  Sex: Male

DRUGS (1)
  1. OLANZAPINE [Suspect]
     Active Substance: OLANZAPINE
     Indication: Schizophrenia
     Dosage: 5 MILLIGRAM, QD (OD (ONCE DAILY))
     Route: 065
     Dates: end: 20250914

REACTIONS (2)
  - Delusional perception [Unknown]
  - Drug ineffective [Unknown]
